FAERS Safety Report 5264254-4 (Version None)
Quarter: 2007Q1

REPORT INFORMATION
  Report Type: 
  Country: None (occurrence: None)
  Receive Date: 20070313
  Receipt Date: 20070306
  Transmission Date: 20070707
  Serious: Yes (Other)
  Sender: FDA-Public Use
  Company Number: US-PFIZER INC-2007018130

PATIENT
  Sex: Male
  Weight: 111.1 kg

DRUGS (2)
  1. CELEBREX [Suspect]
     Indication: TENDONITIS
     Dates: start: 20070201, end: 20070304
  2. IBUPROFEN [Suspect]

REACTIONS (4)
  - DYSPNOEA [None]
  - HYPERSENSITIVITY [None]
  - LOSS OF CONSCIOUSNESS [None]
  - SWOLLEN TONGUE [None]
